FAERS Safety Report 17203295 (Version 1)
Quarter: 2019Q4

REPORT INFORMATION
  Report Type: Spontaneous
  Country: US (occurrence: US)
  Receive Date: 20191226
  Receipt Date: 20191226
  Transmission Date: 20200122
  Serious: No
  Sender: FDA-Public Use
  Company Number: US-UPSHER-SMITH LABORATORIES, LLC-2019USL00326

PATIENT
  Sex: Male

DRUGS (5)
  1. KLOR-CON M [Suspect]
     Active Substance: POTASSIUM CHLORIDE
     Indication: BLOOD POTASSIUM ABNORMAL
     Dosage: 20 MEQ, 4X/DAY
     Route: 048
  2. KLOR-CON M [Suspect]
     Active Substance: POTASSIUM CHLORIDE
     Dosage: 10 MEQ ^MORE OFTEN^
     Route: 048
  3. 25 UNSPECIFIED MEDICATIONS [Concomitant]
  4. KLOR-CON M [Suspect]
     Active Substance: POTASSIUM CHLORIDE
     Dosage: 60 MEQ, DAILY
     Route: 048
  5. KLOR-CON M [Suspect]
     Active Substance: POTASSIUM CHLORIDE
     Dosage: 40 MEQ, 2X/DAY
     Route: 048

REACTIONS (7)
  - Therapeutic product effect incomplete [Recovered/Resolved]
  - Unevaluable event [Unknown]
  - Malabsorption [Unknown]
  - Abdominal pain upper [Unknown]
  - Intentional product use issue [Not Recovered/Not Resolved]
  - Abdominal pain [Recovering/Resolving]
  - Gastrointestinal pain [Unknown]
